FAERS Safety Report 15907308 (Version 1)
Quarter: 2019Q1

REPORT INFORMATION
  Report Type: Spontaneous
  Country: US (occurrence: US)
  Receive Date: 20190204
  Receipt Date: 20190204
  Transmission Date: 20190417
  Serious: No
  Sender: FDA-Public Use
  Company Number: US-PFIZER INC-2019045924

PATIENT
  Age: 82 Year
  Sex: Male

DRUGS (1)
  1. CADUET [Suspect]
     Active Substance: AMLODIPINE BESYLATE\ATORVASTATIN CALCIUM
     Indication: CEREBROVASCULAR ACCIDENT
     Dosage: 1 DF, ONCE A DAY (AMLODIPINE BESILATE: 5 MG/ATORVASTATIN CALCIUM: 10 MG)
     Route: 048

REACTIONS (1)
  - Speech disorder [Unknown]
